FAERS Safety Report 11641362 (Version 3)
Quarter: 2016Q3

REPORT INFORMATION
  Report Type: Spontaneous
  Country: US (occurrence: US)
  Receive Date: 20151019
  Receipt Date: 20160802
  Transmission Date: 20161109
  Serious: Yes (Other)
  Sender: FDA-Public Use
  Company Number: US-VERTEX PHARMACEUTICALS-2015-004484

PATIENT
  Sex: Male

DRUGS (1)
  1. KALYDECO [Suspect]
     Active Substance: IVACAFTOR
     Indication: CYSTIC FIBROSIS
     Dosage: 75 MG, BID
     Route: 048
     Dates: start: 20150916

REACTIONS (2)
  - Dizziness [Not Recovered/Not Resolved]
  - Loss of consciousness [Unknown]

NARRATIVE: CASE EVENT DATE: 2015
